FAERS Safety Report 19392251 (Version 1)
Quarter: 2021Q2

REPORT INFORMATION
  Report Type: Spontaneous
  Country: US (occurrence: US)
  Receive Date: 20210608
  Receipt Date: 20210608
  Transmission Date: 20210717
  Serious: Yes (Hospitalization)
  Sender: FDA-Public Use
  Company Number: US-PRINSTON PHARMACEUTICAL INC.-2021PRN00203

PATIENT
  Age: 15 Year
  Sex: Male

DRUGS (3)
  1. DULOXETINE. [Suspect]
     Active Substance: DULOXETINE
     Dosage: 3060 MG; ^PILLS^
     Route: 048
  2. FLUOXETINE [Concomitant]
     Active Substance: FLUOXETINE HYDROCHLORIDE
     Dosage: 20 MG
     Route: 065
  3. HYDROXYZINE [Concomitant]
     Active Substance: HYDROXYZINE HYDROCHLORIDE
     Dosage: 10 MG
     Route: 065

REACTIONS (5)
  - Electrocardiogram QT prolonged [Recovered/Resolved]
  - Intentional overdose [Recovered/Resolved]
  - Cardiotoxicity [Recovered/Resolved]
  - Serotonin syndrome [Recovered/Resolved]
  - Tachycardia [Recovered/Resolved]
